FAERS Safety Report 5982590-0 (Version None)
Quarter: 2008Q4

REPORT INFORMATION
  Report Type: 
  Country: None (occurrence: None)
  Receive Date: 20081208
  Receipt Date: 20081128
  Transmission Date: 20090506
  Serious: Yes (Other)
  Sender: FDA-Public Use
  Company Number: PHBS2008DE06492

PATIENT
  Age: 39 Year
  Sex: Female

DRUGS (2)
  1. CARBAMAZEPINE [Suspect]
     Indication: PAIN
     Dosage: 1600 MG/DAY
  2. MISOPROSTOL [Concomitant]
     Indication: PAIN
     Dosage: 200 UG, TID

REACTIONS (1)
  - BRAIN INJURY [None]
